FAERS Safety Report 16066514 (Version 1)
Quarter: 2019Q1

REPORT INFORMATION
  Report Type: Spontaneous
  Country: US (occurrence: US)
  Receive Date: 20190313
  Receipt Date: 20190313
  Transmission Date: 20190418
  Serious: Yes (Other)
  Sender: FDA-Public Use
  Company Number: US-BAYER-2019-048699

PATIENT
  Age: 72 Year
  Sex: Male
  Weight: 82 kg

DRUGS (1)
  1. BAYER ASPIRIN [Suspect]
     Active Substance: ASPIRIN
     Indication: PAIN
     Dosage: 2 DF
     Route: 048
     Dates: start: 20190305, end: 20190305

REACTIONS (4)
  - Gastric haemorrhage [None]
  - Haematochezia [Unknown]
  - Gastric haemorrhage [Unknown]
  - Gastric haemorrhage [None]

NARRATIVE: CASE EVENT DATE: 20190306
